FAERS Safety Report 7390968-6 (Version None)
Quarter: 2011Q2

REPORT INFORMATION
  Report Type: 
  Country: None (occurrence: None)
  Receive Date: 20110404
  Receipt Date: 20110331
  Transmission Date: 20111010
  Serious: No
  Sender: FDA-Public Use
  Company Number: US-PFIZER INC-2011072450

PATIENT
  Sex: Female

DRUGS (6)
  1. METOPROLOL [Concomitant]
     Dosage: UNK
  2. TIMOLOL [Concomitant]
     Dosage: 0.5 MG, UNK
  3. XALATAN [Suspect]
     Indication: GLAUCOMA
     Dosage: UNK, DAILY
     Route: 047
     Dates: start: 19991101
  4. AMBIEN [Concomitant]
     Dosage: UNK
  5. WARFARIN [Concomitant]
     Dosage: UNK
  6. ANASTROZOLE [Concomitant]
     Dosage: UNK

REACTIONS (1)
  - EYE PAIN [None]
